FAERS Safety Report 5426941-4 (Version None)
Quarter: 2007Q3

REPORT INFORMATION
  Report Type: 
  Country: None (occurrence: None)
  Receive Date: 20070827
  Receipt Date: 20070821
  Transmission Date: 20080115
  Serious: Yes (Death, Other)
  Sender: FDA-Public Use
  Company Number: US-ABBOTT-07P-163-0378811-00

PATIENT
  Age: 8 Month
  Sex: Female
  Weight: 6 kg

DRUGS (6)
  1. SEVOFLURANE [Suspect]
     Indication: ANAESTHESIA
     Dosage: NOT REPORTED
  2. ETOMIDATE [Suspect]
     Indication: ANAESTHESIA
     Dosage: 2 MG, (0.3 MG/KG)
     Route: 042
  3. NITROUS OXIDE [Suspect]
     Indication: ANAESTHESIA
     Dosage: NOT REPORTED
  4. FENTANYL [Suspect]
     Indication: ANAESTHESIA
     Dosage: 15 MCG, (3 MCG/KG)
  5. ROCURONIUM BROMIDE [Suspect]
     Indication: ANAESTHESIA
     Dosage: 4 MG, 1.5 MG/KG
  6. FLUIDS [Concomitant]
     Indication: FLUID REPLACEMENT
     Dosage: NOT REPORTED
     Route: 042

REACTIONS (3)
  - BLOOD PRESSURE DECREASED [None]
  - OXYGEN SATURATION DECREASED [None]
  - VENTRICULAR FIBRILLATION [None]
